FAERS Safety Report 18657654 (Version 15)
Quarter: 2021Q1

REPORT INFORMATION
  Report Type: Report from Study
  Country: BR (occurrence: BR)
  Receive Date: 20201223
  Receipt Date: 20210203
  Transmission Date: 20210419
  Serious: Yes (Life-Threatening, Hospitalization)
  Sender: FDA-Public Use
  Company Number: BR-ROCHE-2737391

PATIENT
  Age: 43 Year
  Sex: Male
  Weight: 96 kg

DRUGS (130)
  1. OXYGEN. [Concomitant]
     Active Substance: OXYGEN
     Route: 007
     Dates: start: 20201201
  2. OXYGEN. [Concomitant]
     Active Substance: OXYGEN
     Route: 007
     Dates: start: 20201127
  3. OXYGEN. [Concomitant]
     Active Substance: OXYGEN
     Route: 007
     Dates: start: 20201209
  4. OXYGEN. [Concomitant]
     Active Substance: OXYGEN
     Dosage: 15 L/MIN
     Route: 055
     Dates: start: 20201124
  5. OXYGEN. [Concomitant]
     Active Substance: OXYGEN
     Route: 007
     Dates: start: 20201203
  6. OXYGEN. [Concomitant]
     Active Substance: OXYGEN
     Route: 007
     Dates: start: 20201210
  7. OXYGEN. [Concomitant]
     Active Substance: OXYGEN
     Route: 007
     Dates: start: 20201201
  8. OXYGEN. [Concomitant]
     Active Substance: OXYGEN
     Route: 007
     Dates: start: 20201206
  9. OXYGEN. [Concomitant]
     Active Substance: OXYGEN
     Route: 007
     Dates: start: 20201128
  10. OXYGEN. [Concomitant]
     Active Substance: OXYGEN
     Dates: start: 20201220
  11. OXYGEN. [Concomitant]
     Active Substance: OXYGEN
     Dates: start: 20201226
  12. OXYGEN. [Concomitant]
     Active Substance: OXYGEN
     Dates: start: 20201227
  13. OXYGEN. [Concomitant]
     Active Substance: OXYGEN
     Dates: start: 20201231
  14. OXYGEN. [Concomitant]
     Active Substance: OXYGEN
     Dates: start: 20210104
  15. OXYGEN. [Concomitant]
     Active Substance: OXYGEN
     Dates: start: 20201215
  16. OXYGEN. [Concomitant]
     Active Substance: OXYGEN
     Dates: start: 20210112
  17. OXYGEN. [Concomitant]
     Active Substance: OXYGEN
     Dosage: 1
     Dates: start: 20210116
  18. PANTOPRAZOLE [Concomitant]
     Active Substance: PANTOPRAZOLE
     Dates: start: 20201122
  19. DEXAMETHASONE. [Concomitant]
     Active Substance: DEXAMETHASONE
     Indication: COVID-19
     Dates: start: 20201122
  20. OXYGEN. [Concomitant]
     Active Substance: OXYGEN
     Dosage: 15 L/MIN
     Route: 055
     Dates: start: 20201124
  21. OXYGEN. [Concomitant]
     Active Substance: OXYGEN
     Route: 007
     Dates: start: 20201205
  22. OXYGEN. [Concomitant]
     Active Substance: OXYGEN
     Route: 007
     Dates: start: 20201213
  23. OXYGEN. [Concomitant]
     Active Substance: OXYGEN
     Route: 007
     Dates: start: 20201213
  24. OXYGEN. [Concomitant]
     Active Substance: OXYGEN
     Dosage: 15 L/MIN
     Route: 055
     Dates: start: 20201123
  25. OXYGEN. [Concomitant]
     Active Substance: OXYGEN
     Route: 007
     Dates: start: 20201129
  26. OXYGEN. [Concomitant]
     Active Substance: OXYGEN
     Dates: start: 20201221
  27. OXYGEN. [Concomitant]
     Active Substance: OXYGEN
     Dates: start: 20201227
  28. OXYGEN. [Concomitant]
     Active Substance: OXYGEN
     Dates: start: 20201229
  29. OXYGEN. [Concomitant]
     Active Substance: OXYGEN
     Dates: start: 20210101
  30. OXYGEN. [Concomitant]
     Active Substance: OXYGEN
     Dates: start: 20210102
  31. OXYGEN. [Concomitant]
     Active Substance: OXYGEN
     Dates: start: 20210108
  32. OXYGEN. [Concomitant]
     Active Substance: OXYGEN
     Dates: start: 20210106
  33. OXYGEN. [Concomitant]
     Active Substance: OXYGEN
     Dosage: SAME DOSE RECEIVED ON 19/JAN/2021
     Dates: start: 20210113
  34. HEPARIN [Concomitant]
     Active Substance: HEPARIN SODIUM
     Indication: PROPHYLAXIS
     Dates: start: 20201217, end: 20210105
  35. AZITHROMYCIN ANHYDROUS. [Concomitant]
     Active Substance: AZITHROMYCIN ANHYDROUS
     Indication: COVID-19
     Dates: start: 20201122
  36. DEXMEDETOMIDINE. [Concomitant]
     Active Substance: DEXMEDETOMIDINE
     Indication: ANXIETY
     Dates: start: 20201122
  37. METOCLOPRAMIDE. [Concomitant]
     Active Substance: METOCLOPRAMIDE
     Dates: start: 20201122
  38. OXYGEN. [Concomitant]
     Active Substance: OXYGEN
     Route: 007
     Dates: start: 20201212
  39. OXYGEN. [Concomitant]
     Active Substance: OXYGEN
     Route: 007
     Dates: start: 20201208
  40. OXYGEN. [Concomitant]
     Active Substance: OXYGEN
     Route: 007
     Dates: start: 20201212
  41. OXYGEN. [Concomitant]
     Active Substance: OXYGEN
     Route: 007
     Dates: start: 20201202
  42. OXYGEN. [Concomitant]
     Active Substance: OXYGEN
     Route: 007
     Dates: start: 20201209
  43. OXYGEN. [Concomitant]
     Active Substance: OXYGEN
     Dates: start: 20201219
  44. OXYGEN. [Concomitant]
     Active Substance: OXYGEN
     Dates: start: 20201222
  45. OXYGEN. [Concomitant]
     Active Substance: OXYGEN
     Dates: start: 20201224
  46. OXYGEN. [Concomitant]
     Active Substance: OXYGEN
     Dates: start: 20201223
  47. OXYGEN. [Concomitant]
     Active Substance: OXYGEN
     Dates: start: 20201228
  48. OXYGEN. [Concomitant]
     Active Substance: OXYGEN
     Dates: start: 20201229
  49. OXYGEN. [Concomitant]
     Active Substance: OXYGEN
     Dates: start: 20201230
  50. OXYGEN. [Concomitant]
     Active Substance: OXYGEN
     Dates: start: 20210105
  51. OXYGEN. [Concomitant]
     Active Substance: OXYGEN
  52. OXYGEN. [Concomitant]
     Active Substance: OXYGEN
     Dates: start: 20210116
  53. OXYGEN. [Concomitant]
     Active Substance: OXYGEN
     Dosage: MEDICATION DOSE? 4
     Dates: start: 20210118
  54. DIPYRONE [Concomitant]
     Active Substance: DIPYRONE
     Indication: COVID-19
     Dates: start: 20201122
  55. OXYGEN. [Concomitant]
     Active Substance: OXYGEN
     Route: 007
     Dates: start: 20201214
  56. OXYGEN. [Concomitant]
     Active Substance: OXYGEN
     Route: 007
     Dates: start: 20201202
  57. OXYGEN. [Concomitant]
     Active Substance: OXYGEN
     Route: 007
     Dates: start: 20201210
  58. OXYGEN. [Concomitant]
     Active Substance: OXYGEN
     Route: 007
     Dates: start: 20201207
  59. OXYGEN. [Concomitant]
     Active Substance: OXYGEN
     Route: 007
     Dates: start: 20201130
  60. OXYGEN. [Concomitant]
     Active Substance: OXYGEN
     Dates: start: 20201218
  61. OXYGEN. [Concomitant]
     Active Substance: OXYGEN
     Dates: start: 20201221
  62. OXYGEN. [Concomitant]
     Active Substance: OXYGEN
     Dates: start: 20201226
  63. OXYGEN. [Concomitant]
     Active Substance: OXYGEN
     Dates: start: 20201228
  64. OXYGEN. [Concomitant]
     Active Substance: OXYGEN
     Dates: start: 20201231
  65. OXYGEN. [Concomitant]
     Active Substance: OXYGEN
     Dates: start: 20210101
  66. OXYGEN. [Concomitant]
     Active Substance: OXYGEN
     Dosage: 03 L/MIN
     Route: 055
     Dates: start: 20210109
  67. OXYGEN. [Concomitant]
     Active Substance: OXYGEN
     Dates: start: 20210109
  68. OXYGEN. [Concomitant]
     Active Substance: OXYGEN
     Dates: start: 20210114
  69. TOCILIZUMAB. [Suspect]
     Active Substance: TOCILIZUMAB
     Indication: COVID-19 PNEUMONIA
     Dosage: ON 17/DEC/2020, HE RECEIVED THE MOST RECENT DOSE OF TOCILIZUMAB PRIOR TO LIFE THREATENING SEPTIC SHO
     Route: 042
     Dates: start: 20201123
  70. NORADRENALINE [Concomitant]
     Active Substance: NOREPINEPHRINE
     Indication: HYPOTENSION
     Dates: start: 20201127
  71. OXYGEN. [Concomitant]
     Active Substance: OXYGEN
     Dates: start: 20201125
  72. OXYGEN. [Concomitant]
     Active Substance: OXYGEN
     Route: 007
     Dates: start: 20201205
  73. OXYGEN. [Concomitant]
     Active Substance: OXYGEN
     Route: 007
     Dates: start: 20201214
  74. OXYGEN. [Concomitant]
     Active Substance: OXYGEN
     Dates: start: 20201218
  75. OXYGEN. [Concomitant]
     Active Substance: OXYGEN
     Dates: start: 20201222
  76. OXYGEN. [Concomitant]
     Active Substance: OXYGEN
     Dates: start: 20201223
  77. OXYGEN. [Concomitant]
     Active Substance: OXYGEN
     Dates: start: 20201225
  78. OXYGEN. [Concomitant]
     Active Substance: OXYGEN
     Dates: start: 20210105
  79. OXYGEN. [Concomitant]
     Active Substance: OXYGEN
     Dates: start: 20210110
  80. OXYGEN. [Concomitant]
     Active Substance: OXYGEN
     Dates: start: 20210107
  81. OXYGEN. [Concomitant]
     Active Substance: OXYGEN
     Dates: start: 20210115
  82. CEFTRIAXONE. [Concomitant]
     Active Substance: CEFTRIAXONE
     Indication: COVID-19
     Dates: start: 20201122
  83. OXYGEN. [Concomitant]
     Active Substance: OXYGEN
     Dates: start: 20201123
  84. OXYGEN. [Concomitant]
     Active Substance: OXYGEN
     Route: 007
     Dates: start: 20201206
  85. OXYGEN. [Concomitant]
     Active Substance: OXYGEN
     Route: 007
     Dates: start: 20201207
  86. OXYGEN. [Concomitant]
     Active Substance: OXYGEN
     Dosage: 15 L/MIN
     Route: 055
     Dates: start: 20201126
  87. OXYGEN. [Concomitant]
     Active Substance: OXYGEN
     Route: 007
     Dates: start: 20201127
  88. OXYGEN. [Concomitant]
     Active Substance: OXYGEN
     Dosage: 15 L/MIN
     Route: 055
     Dates: start: 20201126
  89. OXYGEN. [Concomitant]
     Active Substance: OXYGEN
     Dates: start: 20201125
  90. OXYGEN. [Concomitant]
     Active Substance: OXYGEN
     Dates: start: 20201123
  91. OXYGEN. [Concomitant]
     Active Substance: OXYGEN
     Dates: start: 20201217
  92. OXYGEN. [Concomitant]
     Active Substance: OXYGEN
     Dates: start: 20201220
  93. OXYGEN. [Concomitant]
     Active Substance: OXYGEN
     Dates: start: 20201224
  94. OXYGEN. [Concomitant]
     Active Substance: OXYGEN
     Dates: start: 20210102
  95. OXYGEN. [Concomitant]
     Active Substance: OXYGEN
     Dates: start: 20210103
  96. OXYGEN. [Concomitant]
     Active Substance: OXYGEN
     Dates: start: 20210104
  97. OXYGEN. [Concomitant]
     Active Substance: OXYGEN
     Dates: start: 20210110
  98. OXYGEN. [Concomitant]
     Active Substance: OXYGEN
     Dates: start: 20210107
  99. OXYGEN. [Concomitant]
     Active Substance: OXYGEN
     Dosage: SAME DOSE RECEIVED ON 19/JAN/2021 AND  21/JAN/2021
     Dates: start: 20210114
  100. OXYGEN. [Concomitant]
     Active Substance: OXYGEN
     Dosage: MEDICATION DOSE? 1
     Dates: start: 20210117
  101. OXYGEN. [Concomitant]
     Active Substance: OXYGEN
     Route: 007
     Dates: start: 20201129
  102. OXYGEN. [Concomitant]
     Active Substance: OXYGEN
     Route: 007
     Dates: start: 20201203
  103. OXYGEN. [Concomitant]
     Active Substance: OXYGEN
     Route: 007
     Dates: start: 20201208
  104. OXYGEN. [Concomitant]
     Active Substance: OXYGEN
     Route: 007
     Dates: start: 20201204
  105. OXYGEN. [Concomitant]
     Active Substance: OXYGEN
     Route: 007
     Dates: start: 20201211
  106. OXYGEN. [Concomitant]
     Active Substance: OXYGEN
     Route: 007
     Dates: start: 20201128
  107. OXYGEN. [Concomitant]
     Active Substance: OXYGEN
     Route: 007
     Dates: start: 20201211
  108. OXYGEN. [Concomitant]
     Active Substance: OXYGEN
     Route: 007
     Dates: start: 20201204
  109. OXYGEN. [Concomitant]
     Active Substance: OXYGEN
     Dates: start: 20201216
  110. OXYGEN. [Concomitant]
     Active Substance: OXYGEN
     Dates: start: 20201216
  111. OXYGEN. [Concomitant]
     Active Substance: OXYGEN
     Dates: start: 20201217
  112. OXYGEN. [Concomitant]
     Active Substance: OXYGEN
     Dates: start: 20201229
  113. OXYGEN. [Concomitant]
     Active Substance: OXYGEN
     Dates: start: 20210106
  114. OXYGEN. [Concomitant]
     Active Substance: OXYGEN
     Dates: start: 20210108
  115. OXYGEN. [Concomitant]
     Active Substance: OXYGEN
     Dosage: SAME DOSE RECEIVED ON 20/JAN/2021
     Dates: start: 20210111
  116. OXYGEN. [Concomitant]
     Active Substance: OXYGEN
     Dosage: MEDICATION DOSE? 1
     Dates: start: 20210118
  117. PIPERACILLIN. [Concomitant]
     Active Substance: PIPERACILLIN SODIUM
     Indication: URINARY TRACT INFECTION
     Dates: start: 20201209, end: 20201218
  118. REMDESIVIR. [Suspect]
     Active Substance: REMDESIVIR
     Indication: COVID-19 PNEUMONIA
     Dosage: TOTAL VOLUME PRIOR AE IS 100 ML TOTAL VOLUME PRIOR SAE IS 100 ML?START DATE OF MOST RECENT DOSE OF S
     Route: 042
     Dates: start: 20201123
  119. ENOXAPARIN [Concomitant]
     Active Substance: ENOXAPARIN
     Dates: start: 20201122
  120. OXYGEN. [Concomitant]
     Active Substance: OXYGEN
     Dosage: 15 L/MIN
     Route: 055
     Dates: start: 20201123
  121. OXYGEN. [Concomitant]
     Active Substance: OXYGEN
     Route: 007
     Dates: start: 20201130
  122. OXYGEN. [Concomitant]
     Active Substance: OXYGEN
     Dates: start: 20201219
  123. OXYGEN. [Concomitant]
     Active Substance: OXYGEN
     Dates: start: 20201225
  124. OXYGEN. [Concomitant]
     Active Substance: OXYGEN
     Dates: start: 20201229
  125. OXYGEN. [Concomitant]
     Active Substance: OXYGEN
     Dates: start: 20210103
  126. OXYGEN. [Concomitant]
     Active Substance: OXYGEN
     Dates: start: 20210112
  127. OXYGEN. [Concomitant]
     Active Substance: OXYGEN
     Dates: start: 20210115
  128. OXYGEN. [Concomitant]
     Active Substance: OXYGEN
     Dates: start: 20210111
  129. OXYGEN. [Concomitant]
     Active Substance: OXYGEN
     Dosage: MEDICATION DOSE? 2
     Dates: start: 20210117
  130. VANCOMYCIN [Concomitant]
     Active Substance: VANCOMYCIN
     Indication: SEPTIC SHOCK
     Dates: start: 20201216, end: 20201226

REACTIONS (3)
  - Catheter site haemorrhage [Recovered/Resolved]
  - Renal injury [Recovering/Resolving]
  - Septic shock [Recovered/Resolved]

NARRATIVE: CASE EVENT DATE: 20201217
